FAERS Safety Report 18527276 (Version 2)
Quarter: 2020Q4

REPORT INFORMATION
  Report Type: Spontaneous
  Country: JP (occurrence: JP)
  Receive Date: 20201120
  Receipt Date: 20201214
  Transmission Date: 20210114
  Serious: Yes (Hospitalization, Other)
  Sender: FDA-Public Use
  Company Number: JP-AMGEN-JPNSP2020184853

PATIENT
  Age: 58 Year
  Sex: Female

DRUGS (20)
  1. DECADRON [Suspect]
     Active Substance: DEXAMETHASONE
     Dosage: 8 MILLIGRAM
     Route: 048
     Dates: start: 20200708, end: 20200709
  2. DECADRON [Suspect]
     Active Substance: DEXAMETHASONE
     Dosage: 8 MILLIGRAM
     Route: 048
     Dates: start: 20200927, end: 20200928
  3. CYCLOPHOSPHAMIDE. [Concomitant]
     Active Substance: CYCLOPHOSPHAMIDE
     Dosage: 80% OF 600 MG/M2
     Route: 041
     Dates: start: 20200721, end: 20200721
  4. EMEND [Concomitant]
     Active Substance: APREPITANT
     Dosage: UNK
     Route: 048
     Dates: start: 20200722, end: 20200724
  5. DECADRON [Suspect]
     Active Substance: DEXAMETHASONE
     Dosage: 8 MILLIGRAM
     Route: 048
     Dates: start: 20200625, end: 20200626
  6. DECADRON [Suspect]
     Active Substance: DEXAMETHASONE
     Dosage: 8 MILLIGRAM
     Route: 048
     Dates: start: 20200722, end: 20200723
  7. EPIRUBICIN HYDROCHLORIDE. [Concomitant]
     Active Substance: EPIRUBICIN HYDROCHLORIDE
     Dosage: 80% OF 90 MG/M2
     Route: 041
     Dates: start: 20200721, end: 20200721
  8. EMEND [Concomitant]
     Active Substance: APREPITANT
     Dosage: UNK
     Route: 048
     Dates: start: 20200708, end: 20200710
  9. PACLITAXEL. [Concomitant]
     Active Substance: PACLITAXEL
     Indication: TRIPLE NEGATIVE BREAST CANCER
     Dosage: UNK
     Route: 041
     Dates: start: 20200926, end: 20200926
  10. DECADRON [Suspect]
     Active Substance: DEXAMETHASONE
     Indication: VOMITING
     Dosage: 8 MILLIGRAM
     Route: 048
     Dates: start: 20200610, end: 20200611
  11. EPIRUBICIN HYDROCHLORIDE. [Concomitant]
     Active Substance: EPIRUBICIN HYDROCHLORIDE
     Dosage: 80% OF 90 MG/M2
     Route: 041
     Dates: start: 20200707, end: 20200707
  12. CYCLOPHOSPHAMIDE. [Concomitant]
     Active Substance: CYCLOPHOSPHAMIDE
     Indication: TRIPLE NEGATIVE BREAST CANCER
     Dosage: 80% OF 600 MG/M2
     Route: 041
     Dates: start: 20200609, end: 20200609
  13. EMEND [Concomitant]
     Active Substance: APREPITANT
     Dosage: UNK
     Route: 048
     Dates: start: 20200625, end: 20200627
  14. G-LASTA [Suspect]
     Active Substance: PEGFILGRASTIM
     Indication: COLONY STIMULATING FACTOR THERAPY
     Dosage: 3.6 MILLIGRAM
     Route: 058
     Dates: start: 202006
  15. CYCLOPHOSPHAMIDE. [Concomitant]
     Active Substance: CYCLOPHOSPHAMIDE
     Dosage: 80% OF 600 MG/M2
     Route: 041
     Dates: start: 20200624, end: 20200624
  16. OLANZAPINE OD [Concomitant]
     Active Substance: OLANZAPINE
     Indication: VOMITING
     Dosage: 5 MILLIGRAM
     Route: 048
     Dates: start: 20200610, end: 20200614
  17. EMEND [Concomitant]
     Active Substance: APREPITANT
     Indication: VOMITING
     Dosage: UNK
     Route: 048
     Dates: start: 20200610, end: 20200612
  18. EPIRUBICIN HYDROCHLORIDE. [Concomitant]
     Active Substance: EPIRUBICIN HYDROCHLORIDE
     Indication: TRIPLE NEGATIVE BREAST CANCER
     Dosage: 80% OF 90 MG/M2
     Route: 041
     Dates: start: 20200609, end: 20200609
  19. EPIRUBICIN HYDROCHLORIDE. [Concomitant]
     Active Substance: EPIRUBICIN HYDROCHLORIDE
     Dosage: 80% OF 90 MG/M2
     Route: 041
     Dates: start: 20200624, end: 20200624
  20. CYCLOPHOSPHAMIDE. [Concomitant]
     Active Substance: CYCLOPHOSPHAMIDE
     Dosage: 80% OF 600 MG/M2
     Route: 041
     Dates: start: 20200707, end: 20200707

REACTIONS (1)
  - Pneumocystis jirovecii pneumonia [Recovering/Resolving]

NARRATIVE: CASE EVENT DATE: 20200929
